FAERS Safety Report 4316155-3 (Version None)
Quarter: 2004Q1

REPORT INFORMATION
  Report Type: 
  Country: None (occurrence: None)
  Receive Date: 20040312
  Receipt Date: 20031023
  Transmission Date: 20041129
  Serious: Yes (Life-Threatening, Hospitalization)
  Sender: FDA-Public Use
  Company Number: PHBS2003AT11904

PATIENT
  Age: 70 Year
  Sex: Male

DRUGS (4)
  1. DECODERM COMP [Concomitant]
     Route: 061
  2. TRAVOCORT [Concomitant]
     Route: 061
  3. EXCIPIAL U LIPOLOTIO [Concomitant]
     Indication: SKIN ULCER
  4. LAMISIL [Suspect]
     Indication: NAIL TINEA
     Dosage: 250 MG, QD
     Route: 048
     Dates: start: 20030901, end: 20031014

REACTIONS (6)
  - ASCITES [None]
  - BRONCHIAL CARCINOMA [None]
  - BUDD-CHIARI SYNDROME [None]
  - LIVER FUNCTION TEST ABNORMAL [None]
  - PROSTATIC SPECIFIC ANTIGEN INCREASED [None]
  - VARICES OESOPHAGEAL [None]
